FAERS Safety Report 8176735-4 (Version None)
Quarter: 2012Q1

REPORT INFORMATION
  Report Type: 
  Country: None (occurrence: None)
  Receive Date: 20120301
  Receipt Date: 20120222
  Transmission Date: 20120608
  Serious: Yes (Other)
  Sender: FDA-Public Use
  Company Number: US-PFIZER INC-2012049239

PATIENT
  Sex: Male
  Weight: 92.971 kg

DRUGS (6)
  1. MAVIK [Concomitant]
     Dosage: 4 MG, DAILY
  2. ATENOLOL [Concomitant]
     Dosage: 50 MG, DAILY
  3. CELEBREX [Suspect]
     Dosage: 200 MG, 2X/DAY
     Route: 048
  4. PREDNISONE [Concomitant]
     Dosage: 3 MG, DAILY
  5. VIAGRA [Suspect]
     Dosage: 100 MG, AS NEEDED
     Route: 048
  6. ZOLOFT [Suspect]
     Dosage: 200 MG, 2X/DAY
     Route: 048

REACTIONS (1)
  - NEOPLASM MALIGNANT [None]
